FAERS Safety Report 13000902 (Version 2)
Quarter: 2016Q4

REPORT INFORMATION
  Report Type: Spontaneous
  Country: FR (occurrence: FR)
  Receive Date: 20161206
  Receipt Date: 20161221
  Transmission Date: 20170207
  Serious: Yes (Hospitalization, Other)
  Sender: FDA-Public Use
  Company Number: FR-ABBVIE-16K-056-1794376-00

PATIENT
  Sex: Male
  Weight: 95 kg

DRUGS (1)
  1. HUMIRA [Suspect]
     Active Substance: ADALIMUMAB
     Indication: PSORIATIC ARTHROPATHY
     Route: 058
     Dates: start: 201605, end: 2016

REACTIONS (5)
  - Pustular psoriasis [Recovering/Resolving]
  - Hepatitis [Unknown]
  - Paradoxical drug reaction [Unknown]
  - Skin reaction [Unknown]
  - Arthritis [Recovering/Resolving]

NARRATIVE: CASE EVENT DATE: 2016
